FAERS Safety Report 10488530 (Version 1)
Quarter: 2014Q3

REPORT INFORMATION
  Report Type: Spontaneous
  Country: US (occurrence: None)
  Receive Date: 20140815
  Receipt Date: 20140815
  Transmission Date: 20150326
  Serious: Yes (Other)
  Sender: FDA-Public Use
  Company Number: ADR-2013-01610

PATIENT
  Age: 48 Year
  Sex: Male

DRUGS (1)
  1. BACLOFEN. [Suspect]
     Active Substance: BACLOFEN
     Indication: SPINAL CORD INJURY
     Dosage: 180 MCG/DAY

REACTIONS (5)
  - Muscle spasticity [None]
  - Hyperhidrosis [None]
  - Underdose [None]
  - Chills [None]
  - Pain [None]
